FAERS Safety Report 21078080 (Version 1)
Quarter: 2022Q3

REPORT INFORMATION
  Report Type: Report from Study
  Country: US (occurrence: US)
  Receive Date: 20220713
  Receipt Date: 20220713
  Transmission Date: 20221026
  Serious: No
  Sender: FDA-Public Use
  Company Number: US-VANDA PHARMACEUTICALS, INC-2021TASUS005316

PATIENT
  Sex: Female
  Weight: 139.96 kg

DRUGS (1)
  1. HETLIOZ [Suspect]
     Active Substance: TASIMELTEON
     Indication: Blindness
     Dosage: 20 MILLIGRAM, QHS
     Route: 048

REACTIONS (1)
  - Ear infection [Unknown]
